APPROVED DRUG PRODUCT: METFORMIN HYDROCHLORIDE
Active Ingredient: METFORMIN HYDROCHLORIDE
Strength: 750MG
Dosage Form/Route: TABLET, EXTENDED RELEASE;ORAL
Application: A076985 | Product #001
Applicant: IMPAX LABORATORIES INC
Approved: Sep 13, 2005 | RLD: No | RS: No | Type: DISCN